FAERS Safety Report 4479604-6 (Version None)
Quarter: 2004Q4

REPORT INFORMATION
  Report Type: 
  Country: None (occurrence: None)
  Receive Date: 20041020
  Receipt Date: 20041008
  Transmission Date: 20050328
  Serious: Yes (Other)
  Sender: FDA-Public Use
  Company Number: GB-BRISTOL-MYERS SQUIBB COMPANY-12725800

PATIENT
  Age: 27 Year
  Sex: Male
  Weight: 97 kg

DRUGS (1)
  1. ABILIFY [Suspect]
     Indication: HALLUCINATION
     Route: 048
     Dates: start: 20040823, end: 20040907

REACTIONS (4)
  - ABDOMINAL DISCOMFORT [None]
  - DEFAECATION URGENCY [None]
  - HYPERHIDROSIS [None]
  - TRISMUS [None]
